FAERS Safety Report 6698200-3 (Version None)
Quarter: 2010Q2

REPORT INFORMATION
  Report Type: 
  Country: None (occurrence: None)
  Receive Date: 20100427
  Receipt Date: 20100422
  Transmission Date: 20101027
  Serious: Yes (Congenital Anomaly, Other)
  Sender: FDA-Public Use
  Company Number: US-BRISTOL-MYERS SQUIBB COMPANY-14767123

PATIENT
  Sex: Female
  Weight: 2 kg

DRUGS (7)
  1. SUSTIVA [Suspect]
     Dosage: INTERRUPTED ON 16NOV2008
     Route: 064
     Dates: end: 20081116
  2. REYATAZ [Suspect]
     Route: 064
     Dates: start: 20081117, end: 20090711
  3. TRUVADA [Suspect]
     Dosage: INTERRUPTED ON 16NOV2008
     Route: 064
     Dates: end: 20090711
  4. NORVIR [Suspect]
     Route: 064
     Dates: start: 20081117, end: 20090711
  5. PROPYLTHIOURACIL [Concomitant]
     Route: 064
  6. ABILIFY [Concomitant]
     Route: 064
  7. ALBUTEROL SULATE [Concomitant]
     Route: 064

REACTIONS (1)
  - VENTRICULAR SEPTAL DEFECT [None]
